FAERS Safety Report 6172102-3 (Version None)
Quarter: 2009Q2

REPORT INFORMATION
  Report Type: 
  Country: None (occurrence: None)
  Receive Date: 20090428
  Receipt Date: 20090428
  Transmission Date: 20091009
  Serious: Yes (Life-Threatening, Hospitalization)
  Sender: FDA-Public Use
  Company Number: None

PATIENT
  Sex: Female
  Weight: 46.7205 kg

DRUGS (4)
  1. LAMICTAL [Suspect]
     Indication: BIPOLAR DISORDER
     Dosage: 25 MG BID PO
     Route: 048
     Dates: start: 20090414, end: 20090423
  2. SEROQUEL [Concomitant]
  3. ESKALITH [Concomitant]
  4. IMIPRAMINE [Concomitant]

REACTIONS (1)
  - ANAPHYLACTIC REACTION [None]
